FAERS Safety Report 5761572-8 (Version None)
Quarter: 2008Q2

REPORT INFORMATION
  Report Type: 
  Country: None (occurrence: None)
  Receive Date: 20080606
  Receipt Date: 20080527
  Transmission Date: 20081010
  Serious: Yes (Other)
  Sender: FDA-Public Use
  Company Number: US-PFIZER INC-2008034664

PATIENT
  Sex: Female
  Weight: 40.8 kg

DRUGS (8)
  1. GEODON [Suspect]
     Indication: BIPOLAR I DISORDER
  2. GEODON [Suspect]
     Indication: BIPOLAR DISORDER
  3. ALL OTHER THERAPEUTIC PRODUCTS [Concomitant]
  4. PROZAC [Concomitant]
     Dosage: DAILY DOSE:10MG-FREQ:DAILY
     Route: 048
  5. ZOLPIDEM TARTRATE [Concomitant]
     Route: 048
  6. WELLBUTRIN XL [Concomitant]
     Dosage: DAILY DOSE:450MG-FREQ:DAILY
     Route: 048
  7. PROVIGIL [Concomitant]
     Dosage: DAILY DOSE:100MG-FREQ:DAILY
     Route: 048
  8. CYMBALTA [Concomitant]

REACTIONS (7)
  - ANXIETY [None]
  - BREAST CANCER [None]
  - DECREASED APPETITE [None]
  - DELUSION [None]
  - PSYCHOTIC DISORDER [None]
  - WEIGHT DECREASED [None]
  - WEIGHT GAIN POOR [None]
